FAERS Safety Report 9731418 (Version 1)
Quarter: 2013Q4

REPORT INFORMATION
  Report Type: Spontaneous
  Country: US (occurrence: None)
  Receive Date: 20131204
  Receipt Date: 20131204
  Transmission Date: 20140711
  Serious: Yes (Other)
  Sender: FDA-Public Use
  Company Number: None

PATIENT
  Sex: Female
  Weight: 66.68 kg

DRUGS (4)
  1. FLAGYL [Suspect]
     Indication: BACTERIAL INFECTION
     Dosage: IT WAS PRESCRIBED FOR ME 10/22/13 FOR 10 DAYS, WHEN I FINISHED, I THREW BOTTLE AWAY
     Route: 048
     Dates: start: 20131022, end: 20131101
  2. ATENOLOL [Concomitant]
  3. ZOCOR [Concomitant]
  4. CLONAZEPAM [Concomitant]

REACTIONS (5)
  - Burning sensation [None]
  - Nausea [None]
  - Lacrimation increased [None]
  - Dizziness [None]
  - Vision blurred [None]
